FAERS Safety Report 8823124 (Version 2)
Quarter: 2013Q3

REPORT INFORMATION
  Report Type: Spontaneous
  Country: US (occurrence: US)
  Receive Date: 20121003
  Receipt Date: 20130725
  Transmission Date: 20140515
  Serious: Yes (Other)
  Sender: FDA-Public Use
  Company Number: US-ASTRAZENECA-2012SE74081

PATIENT
  Age: 74 Year
  Sex: Male
  Weight: 90.7 kg

DRUGS (22)
  1. CRESTOR [Suspect]
     Indication: ARTERIOSCLEROSIS
     Route: 048
     Dates: start: 201201
  2. CRESTOR [Suspect]
     Indication: BLOOD CHOLESTEROL INCREASED
     Route: 048
     Dates: start: 201201
  3. CRESTOR [Suspect]
     Indication: ARTERIOSCLEROSIS
     Route: 048
     Dates: start: 201209, end: 20130711
  4. CRESTOR [Suspect]
     Indication: BLOOD CHOLESTEROL INCREASED
     Route: 048
     Dates: start: 201209, end: 20130711
  5. PLAVIX [Concomitant]
     Indication: CARDIAC DISORDER
     Dates: start: 2002
  6. PLAVIX [Concomitant]
     Indication: CARDIOVASCULAR DISORDER
     Dates: start: 2002
  7. PLAVIX [Concomitant]
     Indication: COAGULOPATHY
     Dates: start: 2002
  8. PLAVIX [Concomitant]
     Indication: CARDIAC DISORDER
     Dates: start: 2003
  9. PLAVIX [Concomitant]
     Indication: CARDIOVASCULAR DISORDER
     Dates: start: 2003
  10. PLAVIX [Concomitant]
     Indication: COAGULOPATHY
     Dates: start: 2003
  11. WARFARIN [Concomitant]
     Indication: CARDIAC DISORDER
     Dates: start: 2002
  12. LORAZEPAM [Concomitant]
     Indication: ANXIETY
     Dates: start: 2002
  13. LORAZEPAM [Concomitant]
     Indication: PANIC ATTACK
     Dates: start: 2002
  14. LORAZEPAM [Concomitant]
     Indication: ANXIETY
     Dates: start: 2003
  15. LORAZEPAM [Concomitant]
     Indication: PANIC ATTACK
     Dates: start: 2003
  16. CHANTIX [Concomitant]
     Indication: SMOKING CESSATION THERAPY
     Dates: start: 2002
  17. ALBUTEROL [Concomitant]
     Indication: ASTHMA
     Dosage: AS REQUIRED
     Dates: start: 2002
  18. SPIRIVA [Concomitant]
     Indication: ASTHMA
     Dosage: TWO PUFFS BID
     Dates: start: 2002
  19. LEXAPRO [Concomitant]
     Indication: DEPRESSION
  20. XARELTO [Concomitant]
     Indication: ANTICOAGULANT THERAPY
     Dates: start: 201301
  21. RANEXA [Concomitant]
     Indication: CARDIAC DISORDER
     Dates: start: 201303
  22. OXYCODONE [Concomitant]
     Indication: PAIN
     Dosage: 650MG PRN EVERY SIX HOURLY
     Dates: start: 20130715

REACTIONS (3)
  - Carotid arteriosclerosis [Unknown]
  - Pain in extremity [Not Recovered/Not Resolved]
  - Drug ineffective [Unknown]
